FAERS Safety Report 6526865-5 (Version None)
Quarter: 2010Q1

REPORT INFORMATION
  Report Type: 
  Country: None (occurrence: None)
  Receive Date: 20100105
  Receipt Date: 20091222
  Transmission Date: 20100710
  Serious: Yes (Hospitalization, Other)
  Sender: FDA-Public Use
  Company Number: PHHY2009FR58351

PATIENT
  Sex: Male

DRUGS (4)
  1. TAREG [Suspect]
     Indication: HYPERTENSION
     Dosage: 40 MG, QD
     Route: 048
     Dates: end: 20091028
  2. BACTRIM [Suspect]
     Dosage: UNK
     Route: 048
     Dates: start: 20091022, end: 20091028
  3. IMMUCYST [Suspect]
     Indication: BLADDER CANCER
     Dosage: 1 DF, QW
     Route: 043
     Dates: start: 20091001, end: 20091001
  4. SIMVASTATIN [Suspect]
     Dosage: 20 MG DAILY
     Route: 048
     Dates: end: 20091028

REACTIONS (3)
  - PYREXIA [None]
  - RASH MACULO-PAPULAR [None]
  - URINARY TRACT INFECTION [None]
